FAERS Safety Report 6642820-9 (Version None)
Quarter: 2010Q1

REPORT INFORMATION
  Report Type: 
  Country: None (occurrence: None)
  Receive Date: 20100319
  Receipt Date: 20100310
  Transmission Date: 20100710
  Serious: Yes (Hospitalization, Other)
  Sender: FDA-Public Use
  Company Number: US-ELI_LILLY_AND_COMPANY-US200906005667

PATIENT
  Sex: Female
  Weight: 78.005 kg

DRUGS (10)
  1. BYETTA [Suspect]
     Dosage: 10 UG, UNKNOWN
     Dates: start: 20080701, end: 20080801
  2. ALPRAZOLAM [Concomitant]
     Dosage: 2.5 MG, DAILY (1/D)
  3. DIOVAN [Concomitant]
     Dosage: UNK, DAILY (1/D)
     Route: 048
  4. LORATADINE [Concomitant]
     Dosage: 10 MG, DAILY (1/D)
     Route: 048
  5. LOVASTATIN [Concomitant]
     Dosage: 20 MG, EACH EVENING
     Route: 048
  6. METFORMIN [Concomitant]
     Dosage: 1000 MG, 2/D
     Route: 048
  7. MOBIC [Concomitant]
     Dosage: 7.5 MG, DAILY (1/D)
     Route: 048
  8. SINGULAIR [Concomitant]
     Dosage: 10 MG, DAILY (1/D)
     Route: 048
  9. URSODIOL [Concomitant]
     Dosage: 300 MG, 2/D
  10. KAYEXALATE [Concomitant]
     Dosage: UNK, UNKNOWN

REACTIONS (4)
  - BLINDNESS TRANSIENT [None]
  - INTESTINAL FUNCTIONAL DISORDER [None]
  - PANCREATITIS [None]
  - RENAL FAILURE ACUTE [None]
